FAERS Safety Report 15656944 (Version 1)
Quarter: 2018Q4

REPORT INFORMATION
  Report Type: Spontaneous
  Country: FR (occurrence: FR)
  Receive Date: 20181126
  Receipt Date: 20181126
  Transmission Date: 20190205
  Serious: Yes (Congenital Anomaly)
  Sender: FDA-Public Use
  Company Number: FR-JNJFOC-20181120560

PATIENT

DRUGS (1)
  1. XEPLION [Suspect]
     Active Substance: PALIPERIDONE PALMITATE
     Indication: PRODUCT USED FOR UNKNOWN INDICATION
     Dosage: FATHER^S DOSING
     Route: 064
     Dates: start: 20180724

REACTIONS (2)
  - Foetal exposure during pregnancy [Unknown]
  - Cystic lymphangioma [Not Recovered/Not Resolved]

NARRATIVE: CASE EVENT DATE: 20181011
